FAERS Safety Report 18528724 (Version 4)
Quarter: 2021Q3

REPORT INFORMATION
  Report Type: Report from Study
  Country: US (occurrence: US)
  Receive Date: 20201120
  Receipt Date: 20210809
  Transmission Date: 20211014
  Serious: Yes (Hospitalization)
  Sender: FDA-Public Use
  Company Number: NVSC2020US300025

PATIENT
  Sex: Male

DRUGS (2)
  1. KESIMPTA [Suspect]
     Active Substance: OFATUMUMAB
     Indication: PRODUCT USED FOR UNKNOWN INDICATION
     Dosage: UNK
     Route: 065
     Dates: start: 20201103
  2. CEFTIN [Concomitant]
     Active Substance: CEFUROXIME AXETIL
     Indication: PRODUCT USED FOR UNKNOWN INDICATION
     Dosage: 500 MG, BID (FOR NEXT 5 DAYS)
     Route: 065

REACTIONS (9)
  - Arthralgia [Recovering/Resolving]
  - Body temperature increased [Recovering/Resolving]
  - Oxygen saturation abnormal [Recovering/Resolving]
  - Chills [Recovering/Resolving]
  - Dysuria [Recovering/Resolving]
  - Muscle rigidity [Recovering/Resolving]
  - Blood pressure increased [Recovering/Resolving]
  - Sepsis [Recovering/Resolving]
  - Urinary tract infection [Recovering/Resolving]
